FAERS Safety Report 7497106-X (Version None)
Quarter: 2011Q2

REPORT INFORMATION
  Report Type: 
  Country: None (occurrence: None)
  Receive Date: 20110523
  Receipt Date: 20110512
  Transmission Date: 20111010
  Serious: Yes (Hospitalization, Other)
  Sender: FDA-Public Use
  Company Number: MX-SANOFI-AVENTIS-2011SA029698

PATIENT
  Age: 61 Year
  Sex: Female

DRUGS (8)
  1. INSULIN GLARGINE [Suspect]
     Route: 058
     Dates: start: 20080101, end: 20110511
  2. MICARDIS HCT [Concomitant]
     Dosage: 80 MG + 12.5 MG
     Route: 048
  3. METOPROLOL SUCCINATE [Concomitant]
     Dosage: 1/2 OF 100 MG TABLET/12 HOURS
     Route: 048
  4. CARBAMAZEPINE [Concomitant]
     Indication: DIABETIC NEUROPATHY
     Dosage: 24 HOURS (IN NECESSARY CASE)
     Route: 048
     Dates: start: 20060101
  5. INSULIN GLARGINE [Suspect]
     Route: 058
     Dates: start: 20110511
  6. SHORANT [Suspect]
     Route: 058
     Dates: start: 20080101, end: 20110511
  7. SHORANT [Suspect]
     Dosage: 2-12 IU (DOSE DEPENDS ON GLUCOSE LEVELS)
     Route: 058
     Dates: start: 20110511
  8. LEVOTHYROXINE SODIUM [Concomitant]
     Indication: HYPOTHYROIDISM
     Route: 048
     Dates: start: 20050101

REACTIONS (6)
  - URINARY TRACT INFECTION [None]
  - HYPERTENSION [None]
  - NAUSEA [None]
  - HYPERGLYCAEMIA [None]
  - DYSPEPSIA [None]
  - MYOCARDIAL INFARCTION [None]
